FAERS Safety Report 6147122-5 (Version None)
Quarter: 2009Q2

REPORT INFORMATION
  Report Type: 
  Country: None (occurrence: None)
  Receive Date: 20090403
  Receipt Date: 20090323
  Transmission Date: 20091009
  Serious: Yes (Other)
  Sender: FDA-Public Use
  Company Number: 2009EN000121

PATIENT
  Age: 48 Year
  Sex: Male

DRUGS (11)
  1. ABELCET [Suspect]
     Indication: RESPIRATORY DISORDER
     Dosage: 450 MG; QD; IV
     Route: 042
     Dates: start: 20090228, end: 20090228
  2. ABELCET [Suspect]
     Indication: SEPSIS
     Dosage: 450 MG; QD; IV
     Route: 042
     Dates: start: 20090228, end: 20090228
  3. OMEPRAZOLE [Concomitant]
  4. PARACETAMOL [Concomitant]
  5. CEFUROXIME [Concomitant]
  6. MORPHINE [Concomitant]
  7. COMBIVENT [Concomitant]
  8. TAXOCIN [Concomitant]
  9. VANCOMYCIN HCL [Concomitant]
  10. GENTAMICIN [Concomitant]
  11. HEPARIN [Concomitant]

REACTIONS (4)
  - BLOOD PRESSURE INCREASED [None]
  - OXYGEN SATURATION DECREASED [None]
  - PYREXIA [None]
  - TACHYCARDIA [None]
